FAERS Safety Report 5627820-X (Version None)
Quarter: 2008Q1

REPORT INFORMATION
  Report Type: 
  Country: None (occurrence: None)
  Receive Date: 20080215
  Receipt Date: 20080208
  Transmission Date: 20080703
  Serious: Yes (Other)
  Sender: FDA-Public Use
  Company Number: US-TEVA-167412USA

PATIENT
  Sex: Female

DRUGS (7)
  1. COPAXONE [Suspect]
     Indication: MULTIPLE SCLEROSIS
     Route: 058
     Dates: start: 20071213
  2. DULOXETINE HYDROCHLORIDE [Concomitant]
  3. IBUPROFEN [Concomitant]
  4. TRAZODONE HCL [Concomitant]
  5. MODAFINIL [Concomitant]
  6. MELOXICAM [Concomitant]
  7. ACETYLSALICYLIC ACID SRT [Concomitant]

REACTIONS (1)
  - UTERINE CANCER [None]
